FAERS Safety Report 19636098 (Version 1)
Quarter: 2021Q3

REPORT INFORMATION
  Report Type: Report from Study
  Country: CN (occurrence: CN)
  Receive Date: 20210730
  Receipt Date: 20210730
  Transmission Date: 20211014
  Serious: Yes (Other)
  Sender: FDA-Public Use
  Company Number: CN-PFIZER INC-202100942483

PATIENT

DRUGS (2)
  1. PARECOXIB SODIUM. [Suspect]
     Active Substance: PARECOXIB SODIUM
     Dosage: 40 MG, 2X/DAY
     Route: 030
  2. CELECOXIB. [Suspect]
     Active Substance: CELECOXIB
     Dosage: 400 MG
     Route: 048

REACTIONS (1)
  - Urinary retention [Unknown]
